FAERS Safety Report 7498469-1 (Version None)
Quarter: 2011Q2

REPORT INFORMATION
  Report Type: 
  Country: None (occurrence: None)
  Receive Date: 20110524
  Receipt Date: 20110429
  Transmission Date: 20111010
  Serious: Yes (Other)
  Sender: FDA-Public Use
  Company Number: US-BAYER-201028041NA

PATIENT
  Age: 39 Year
  Sex: Female
  Weight: 60.771 kg

DRUGS (8)
  1. ALBUTEROL SULFATE AUTOHALER [Concomitant]
     Dosage: UNK
     Dates: start: 19990101
  2. YAZ [Suspect]
     Dosage: UNK
     Dates: start: 20070501, end: 20091201
  3. NAPROXEN [Concomitant]
     Dosage: 500 MG, UNK
  4. NASACORT AQ [Concomitant]
     Dosage: 55 MCG/24HR, UNK
  5. APAP W/ CODEINE [Concomitant]
     Dosage: 300 - 30
  6. ZYRTEC [Concomitant]
     Dosage: UNK
     Dates: start: 19990101
  7. ADVAIR DISKUS 100/50 [Concomitant]
     Dosage: UNK
     Dates: start: 19990101
  8. HYDROCODONE BITARTRATE AND ACETAMINOPHEN [Concomitant]
     Dosage: 10 - 650

REACTIONS (4)
  - CHOLELITHIASIS [None]
  - GALLBLADDER DISORDER [None]
  - ABDOMINAL PAIN [None]
  - CHOLECYSTITIS CHRONIC [None]
